FAERS Safety Report 14966291 (Version 1)
Quarter: 2018Q2

REPORT INFORMATION
  Report Type: Spontaneous
  Country: JP (occurrence: JP)
  Receive Date: 20180603
  Receipt Date: 20180603
  Transmission Date: 20180711
  Serious: Yes (Other)
  Sender: FDA-Public Use
  Company Number: JP-SUN PHARMACEUTICAL INDUSTRIES LTD-2018R3-174397

PATIENT
  Sex: Female

DRUGS (2)
  1. GIBONZ [Concomitant]
     Indication: PRODUCT USED FOR UNKNOWN INDICATION
     Dosage: UNK
     Route: 065
  2. TERNELIN [Suspect]
     Active Substance: TIZANIDINE
     Indication: ARTHROPATHY
     Dosage: 6 MG, DAILY
     Route: 048

REACTIONS (4)
  - Seizure [Unknown]
  - Oculogyric crisis [Unknown]
  - Epilepsy [Unknown]
  - Loss of consciousness [Unknown]
